FAERS Safety Report 6405671-6 (Version None)
Quarter: 2009Q4

REPORT INFORMATION
  Report Type: 
  Country: None (occurrence: None)
  Receive Date: 20091019
  Receipt Date: 20091012
  Transmission Date: 20100525
  Serious: Yes (Other)
  Sender: FDA-Public Use
  Company Number: B0598316A

PATIENT
  Age: 54 Year
  Sex: Male
  Weight: 69 kg

DRUGS (7)
  1. ABACAVIR [Suspect]
     Indication: ANTIRETROVIRAL THERAPY
     Dosage: 600MG PER DAY
     Route: 048
     Dates: start: 20090414
  2. LAMIVUDINE [Suspect]
     Indication: ANTIRETROVIRAL THERAPY
     Dosage: 300MG PER DAY
     Route: 048
     Dates: start: 20090414
  3. COTRIM [Suspect]
     Dosage: 960MG PER DAY
     Route: 048
     Dates: start: 20090303
  4. SUSTIVA [Suspect]
     Indication: HIV INFECTION
     Dosage: 600MG PER DAY
     Route: 048
     Dates: start: 20090414
  5. TRAMADOL [Concomitant]
     Indication: PAIN
  6. METOCLOPRAMIDE [Concomitant]
     Indication: NAUSEA
  7. SENOKOT [Concomitant]
     Indication: CONSTIPATION

REACTIONS (1)
  - NON-HODGKIN'S LYMPHOMA [None]
